FAERS Safety Report 8091092-X (Version None)
Quarter: 2012Q1

REPORT INFORMATION
  Report Type: 
  Country: None (occurrence: None)
  Receive Date: 20120129
  Receipt Date: 20111020
  Transmission Date: 20120608
  Serious: No
  Sender: FDA-Public Use
  Company Number: US-ABBOTT-11P-163-0867011-00

PATIENT
  Age: 33 Year
  Sex: Male

DRUGS (5)
  1. HUMIRA [Suspect]
     Indication: PSORIASIS
     Dates: end: 20110601
  2. PROTOPIC [Concomitant]
     Indication: PRODUCT USED FOR UNKNOWN INDICATION
     Dosage: TO GENITALIA, ONCE DAILY
  3. HUMIRA [Suspect]
     Dates: start: 20110921
  4. CLOBETASOL PROPIONATE [Concomitant]
     Dosage: ONCE DAILY TO SCALP AT BEDTIME
  5. CLOBETASOL PROPIONATE [Concomitant]
     Indication: PSORIASIS
     Dosage: 1-2 TIMES DAILY FOR 2 WEEKS THEN AS NEEDED WEEKLY
     Route: 061

REACTIONS (1)
  - PSORIASIS [None]
